FAERS Safety Report 10221547 (Version 3)
Quarter: 2014Q2

REPORT INFORMATION
  Report Type: Spontaneous
  Country: US (occurrence: US)
  Receive Date: 20140606
  Receipt Date: 20140630
  Transmission Date: 20141212
  Serious: Yes (Hospitalization, Other)
  Sender: FDA-Public Use
  Company Number: US-JNJFOC-20140519192

PATIENT
  Age: 47 Year
  Sex: Female

DRUGS (10)
  1. OLYSIO [Suspect]
     Indication: HEPATITIS C
     Route: 048
     Dates: start: 201402, end: 201404
  2. SOVALDI [Suspect]
     Indication: HEPATITIS C
     Route: 048
     Dates: start: 201402, end: 201404
  3. RIBAVIRIN [Suspect]
     Indication: HEPATITIS C
     Route: 065
     Dates: start: 201402
  4. PURINETHOL [Suspect]
     Indication: AUTOIMMUNE HEPATITIS
     Route: 048
     Dates: end: 201404
  5. PURINETHOL [Suspect]
     Indication: AUTOIMMUNE HEPATITIS
     Route: 048
     Dates: start: 201404
  6. ENTOCORT [Concomitant]
     Indication: AUTOIMMUNE HEPATITIS
     Route: 048
     Dates: start: 201404, end: 201405
  7. ENTOCORT [Concomitant]
     Indication: AUTOIMMUNE HEPATITIS
     Route: 048
     Dates: end: 201404
  8. AUGMENTIN [Concomitant]
     Indication: DYSURIA
     Route: 048
  9. CEFEPIME [Concomitant]
     Indication: PRODUCT USED FOR UNKNOWN INDICATION
     Route: 042
     Dates: start: 20140527
  10. ZOFRAN [Concomitant]
     Indication: PRODUCT USED FOR UNKNOWN INDICATION
     Route: 065

REACTIONS (17)
  - Drug-induced liver injury [Recovered/Resolved]
  - Ocular icterus [Recovered/Resolved]
  - Jaundice [Recovered/Resolved]
  - Autoimmune hepatitis [Recovered/Resolved]
  - Pyrexia [Recovered/Resolved]
  - Tachycardia [Recovered/Resolved]
  - Subacute hepatic failure [Recovered/Resolved]
  - Urinary tract infection [Recovered/Resolved]
  - Fatigue [Recovering/Resolving]
  - Pruritus generalised [Recovering/Resolving]
  - Nausea [Recovering/Resolving]
  - Decreased appetite [Recovering/Resolving]
  - Diarrhoea [Recovering/Resolving]
  - Peripheral swelling [Recovering/Resolving]
  - Dysuria [Recovering/Resolving]
  - Cough [Recovering/Resolving]
  - Off label use [Recovered/Resolved]
